FAERS Safety Report 24350434 (Version 1)
Quarter: 2024Q3

REPORT INFORMATION
  Report Type: Spontaneous
  Country: IT (occurrence: IT)
  Receive Date: 20240923
  Receipt Date: 20240923
  Transmission Date: 20241017
  Serious: No
  Sender: ROCHE
  Company Number: None

PATIENT
  Age: 67 Year
  Sex: Female

DRUGS (1)
  1. TRASTUZUMAB [Suspect]
     Active Substance: TRASTUZUMAB
     Indication: HER2 positive breast cancer
     Dosage: START OF THERAPY 02/2023 - THERAPY EVERY 21 DAYS - XIV CYCLE
     Route: 041
     Dates: start: 20231123, end: 20231123

REACTIONS (3)
  - Vomiting [Recovering/Resolving]
  - Salivary hypersecretion [Recovering/Resolving]
  - Nail dystrophy [Recovering/Resolving]
